FAERS Safety Report 6002777-0 (Version None)
Quarter: 2008Q4

REPORT INFORMATION
  Report Type: 
  Country: None (occurrence: None)
  Receive Date: 20081215
  Receipt Date: 20071115
  Transmission Date: 20090506
  Serious: No
  Sender: FDA-Public Use
  Company Number: US-AMGEN-KDL251566

PATIENT
  Sex: Male
  Weight: 93.5 kg

DRUGS (8)
  1. ENBREL [Suspect]
     Indication: PSORIASIS
     Route: 058
     Dates: start: 20061218
  2. BENICAR [Concomitant]
  3. LOTREL [Concomitant]
  4. ACEBUTOLOL [Concomitant]
  5. ASPIRIN [Concomitant]
  6. PLAVIX [Concomitant]
  7. ZETIA [Concomitant]
  8. PREVACID [Concomitant]

REACTIONS (1)
  - DRUG ERUPTION [None]
